FAERS Safety Report 5130118-X (Version None)
Quarter: 2006Q4

REPORT INFORMATION
  Report Type: 
  Country: None (occurrence: None)
  Receive Date: 20061013
  Receipt Date: 20060928
  Transmission Date: 20070319
  Serious: Yes (Other)
  Sender: FDA-Public Use
  Company Number: GB200610000051

PATIENT
  Age: 73 Year
  Sex: Male

DRUGS (3)
  1. CIALIS [Suspect]
     Indication: ERECTILE DYSFUNCTION
     Dosage: 50 MG ORAL
     Route: 048
     Dates: start: 20030101, end: 20040101
  2. VIAGRA/SWE/(SILDENAFIL CITRATE) [Concomitant]
  3. CIMETIDINE [Concomitant]

REACTIONS (2)
  - NEUROPATHY PERIPHERAL [None]
  - PRESCRIBED OVERDOSE [None]
